FAERS Safety Report 9222402 (Version 1)
Quarter: 2013Q2

REPORT INFORMATION
  Report Type: Spontaneous
  Country: NL (occurrence: NL)
  Receive Date: 20130410
  Receipt Date: 20130410
  Transmission Date: 20140414
  Serious: Yes (Death)
  Sender: FDA-Public Use
  Company Number: NL-AMGEN-NLDSP2013023942

PATIENT
  Age: 65 Year
  Sex: Male

DRUGS (2)
  1. XGEVA [Suspect]
     Indication: PROSTATE CANCER METASTATIC
     Dosage: 120 UNK, Q4WK
     Route: 058
     Dates: start: 201209
  2. CALCI CHEW D3 [Concomitant]
     Dosage: 500 MG/400 IE

REACTIONS (1)
  - Death [Fatal]
